FAERS Safety Report 14407012 (Version 1)
Quarter: 2018Q1

REPORT INFORMATION
  Report Type: Spontaneous
  Country: US (occurrence: US)
  Receive Date: 20180118
  Receipt Date: 20180118
  Transmission Date: 20180509
  Serious: Yes (Hospitalization)
  Sender: FDA-Public Use
  Company Number: US-TEVA-2018-US-846844

PATIENT
  Age: 53 Year
  Sex: Male

DRUGS (12)
  1. HEPARIN [Suspect]
     Active Substance: HEPARIN SODIUM
     Indication: ANTICOAGULANT THERAPY
     Dosage: INFUSION WITHOUT BOLUS STARTED AFTER HAEMOSTASIS
     Route: 050
  2. ASPIRIN. [Suspect]
     Active Substance: ASPIRIN
     Indication: ANTICOAGULANT THERAPY
     Dosage: 81MG DAILY
     Route: 065
  3. CANGRELOR [Suspect]
     Active Substance: CANGRELOR
     Indication: ANTIPLATELET THERAPY
     Dosage: DOSE TITRATED TO 0.5MICROG/KG/MIN
     Route: 042
  4. EPTIFIBATIDE. [Suspect]
     Active Substance: EPTIFIBATIDE
     Indication: ANTIPLATELET THERAPY
     Dosage: 1 MICROG/KG/MIN
     Route: 065
  5. HEPARIN [Suspect]
     Active Substance: HEPARIN SODIUM
     Indication: ANTICOAGULANT THERAPY
     Dosage: INITIATED AT AN UNKNOWN DOSE ON POD 8
     Route: 065
  6. EPTIFIBATIDE. [Suspect]
     Active Substance: EPTIFIBATIDE
     Indication: ANTICOAGULANT THERAPY
     Dosage: 2 MICROG/KG/MIN; INFUSION
     Route: 050
  7. CLOPIDOGREL [Suspect]
     Active Substance: CLOPIDOGREL BISULFATE
     Indication: ANTIPLATELET THERAPY
     Route: 065
  8. HEPARIN [Suspect]
     Active Substance: HEPARIN SODIUM
     Indication: ANTICOAGULANT THERAPY
     Dosage: 5000U; BOLUS
     Route: 050
  9. CANGRELOR [Suspect]
     Active Substance: CANGRELOR
     Indication: ANTIPLATELET THERAPY
     Dosage: 2MICROG/KG/MIN
     Route: 042
  10. TICAGRELOR. [Suspect]
     Active Substance: TICAGRELOR
     Route: 065
  11. EPTIFIBATIDE. [Suspect]
     Active Substance: EPTIFIBATIDE
     Indication: ANTICOAGULANT THERAPY
     Dosage: 60U/KG
     Route: 040
  12. TICAGRELOR. [Suspect]
     Active Substance: TICAGRELOR
     Indication: ANTICOAGULANT THERAPY
     Dosage: LOADING DOSE VIA ORAL GASTRIC TUBE
     Route: 048

REACTIONS (1)
  - Pulmonary haemorrhage [Unknown]
